FAERS Safety Report 14665665 (Version 1)
Quarter: 2018Q1

REPORT INFORMATION
  Report Type: Report from Study
  Country: ES (occurrence: ES)
  Receive Date: 20180321
  Receipt Date: 20180321
  Transmission Date: 20180509
  Serious: Yes (Hospitalization)
  Sender: FDA-Public Use
  Company Number: ES-TEVA-2018-ES-869955

PATIENT
  Age: 47 Year
  Sex: Male

DRUGS (4)
  1. PARACETAMOL (12A) [Interacting]
     Active Substance: ACETAMINOPHEN
     Indication: PYREXIA
     Route: 048
     Dates: start: 20160121, end: 20160129
  2. TOBRAMICINA (3141A) [Interacting]
     Active Substance: TOBRAMYCIN
     Indication: URINARY TRACT INFECTION
     Route: 065
     Dates: start: 20160125, end: 20160129
  3. CEFTRIAXONA (501A) [Interacting]
     Active Substance: CEFTRIAXONE
     Indication: URINARY TRACT INFECTION
     Route: 065
     Dates: start: 20160125, end: 20160129
  4. IBUPROFENO (1769A) [Suspect]
     Active Substance: IBUPROFEN
     Indication: PYREXIA
     Route: 048
     Dates: start: 20160121, end: 20160129

REACTIONS (2)
  - Drug interaction [Unknown]
  - Acute kidney injury [Recovered/Resolved]

NARRATIVE: CASE EVENT DATE: 20160129
